FAERS Safety Report 24032128 (Version 14)
Quarter: 2025Q1

REPORT INFORMATION
  Report Type: Report from Study
  Country: AU (occurrence: AU)
  Receive Date: 20240630
  Receipt Date: 20250324
  Transmission Date: 20250409
  Serious: Yes (Other)
  Sender: NOVARTIS
  Company Number: AU-002147023-NVSC2024AU133479

PATIENT
  Sex: Female

DRUGS (5)
  1. KESIMPTA [Suspect]
     Active Substance: OFATUMUMAB
     Indication: Relapsing-remitting multiple sclerosis
     Dosage: 20 MG, QW
     Route: 058
     Dates: start: 20240625
  2. KESIMPTA [Suspect]
     Active Substance: OFATUMUMAB
     Dosage: 20 MG, QMO
     Route: 058
  3. KESIMPTA [Suspect]
     Active Substance: OFATUMUMAB
     Dosage: 20 MG, QW
     Route: 058
  4. KESIMPTA [Suspect]
     Active Substance: OFATUMUMAB
     Dosage: 20 MG, QW
     Route: 058
     Dates: start: 20241112
  5. KESIMPTA [Suspect]
     Active Substance: OFATUMUMAB
     Route: 058

REACTIONS (19)
  - Hypertension [Not Recovered/Not Resolved]
  - Lethargy [Unknown]
  - Pyrexia [Unknown]
  - Blood pressure fluctuation [Unknown]
  - Tremor [Unknown]
  - Drug intolerance [Unknown]
  - Electric shock sensation [Unknown]
  - Anxiety [Unknown]
  - Muscular weakness [Unknown]
  - Fatigue [Unknown]
  - Paraesthesia [Unknown]
  - Dizziness [Unknown]
  - Headache [Unknown]
  - Tinnitus [Unknown]
  - Palpitations [Not Recovered/Not Resolved]
  - Eye infection [Recovered/Resolved]
  - Urticaria [Unknown]
  - Rash [Unknown]
  - Infection [Unknown]

NARRATIVE: CASE EVENT DATE: 20240101
